FAERS Safety Report 17959883 (Version 2)
Quarter: 2020Q4

REPORT INFORMATION
  Report Type: Report from Study
  Country: BR (occurrence: BR)
  Receive Date: 20200629
  Receipt Date: 20201019
  Transmission Date: 20210113
  Serious: Yes (Hospitalization, Other)
  Sender: FDA-Public Use
  Company Number: PHHY2018BR152978

PATIENT
  Age: 46 Year
  Sex: Female
  Weight: 84 kg

DRUGS (5)
  1. SANDOSTATIN LAR DEPOT [Suspect]
     Active Substance: OCTREOTIDE ACETATE
     Dosage: 30 MG
     Route: 065
  2. SANDOSTATIN LAR DEPOT [Suspect]
     Active Substance: OCTREOTIDE ACETATE
     Indication: ACROMEGALY
     Dosage: 30 MG, QMO (10 YEARS AGO)
     Route: 030
     Dates: start: 20110101
  3. DULOXETINE. [Suspect]
     Active Substance: DULOXETINE
     Indication: DEPRESSION
     Dosage: UNK
     Route: 065
     Dates: start: 202001
  4. CABERGOLINE. [Concomitant]
     Active Substance: CABERGOLINE
     Indication: PRODUCT USED FOR UNKNOWN INDICATION
     Dosage: UNK, Q2W
     Route: 065
     Dates: start: 201910
  5. SANDOSTATIN LAR DEPOT [Suspect]
     Active Substance: OCTREOTIDE ACETATE
     Dosage: 20 MG (2 OR 3 YEARS)
     Route: 030

REACTIONS (19)
  - Influenza [Unknown]
  - Growth disorder [Not Recovered/Not Resolved]
  - Malaise [Not Recovered/Not Resolved]
  - Discomfort [Not Recovered/Not Resolved]
  - Panic reaction [Not Recovered/Not Resolved]
  - Dizziness [Not Recovered/Not Resolved]
  - Inappropriate schedule of product administration [Unknown]
  - Blood pressure increased [Unknown]
  - Product dose omission issue [Unknown]
  - Blood growth hormone abnormal [Not Recovered/Not Resolved]
  - Swelling [Recovering/Resolving]
  - Depression [Not Recovered/Not Resolved]
  - Post-traumatic stress disorder [Recovering/Resolving]
  - Tendon rupture [Recovering/Resolving]
  - Syncope [Not Recovered/Not Resolved]
  - Arthralgia [Recovering/Resolving]
  - Tachycardia [Unknown]
  - Headache [Not Recovered/Not Resolved]
  - Insulin-like growth factor increased [Not Recovered/Not Resolved]

NARRATIVE: CASE EVENT DATE: 201909
